FAERS Safety Report 12689089 (Version 1)
Quarter: 2016Q3

REPORT INFORMATION
  Report Type: Spontaneous
  Country: US (occurrence: None)
  Receive Date: 20160825
  Receipt Date: 20160825
  Transmission Date: 20161109
  Serious: No
  Sender: FDA-Public Use
  Company Number: None

PATIENT
  Age: 51 Year
  Sex: Female

DRUGS (1)
  1. TRACLEER [Suspect]
     Active Substance: BOSENTAN
     Indication: CONGENITAL HEARING DISORDER
     Route: 048
     Dates: start: 20141118

REACTIONS (1)
  - Adverse event [None]

NARRATIVE: CASE EVENT DATE: 20160824
